FAERS Safety Report 13276576 (Version 1)
Quarter: 2017Q1

REPORT INFORMATION
  Report Type: Spontaneous
  Country: US (occurrence: US)
  Receive Date: 20170228
  Receipt Date: 20170228
  Transmission Date: 20170428
  Serious: Yes (Hospitalization)
  Sender: FDA-Public Use
  Company Number: None

PATIENT
  Age: 77 Year
  Sex: Female

DRUGS (1)
  1. PREDNISONE. [Suspect]
     Active Substance: PREDNISONE

REACTIONS (4)
  - Hypotension [None]
  - Bradycardia [None]
  - Clostridium test positive [None]
  - Diarrhoea [None]

NARRATIVE: CASE EVENT DATE: 20150128
